FAERS Safety Report 11520721 (Version 1)
Quarter: 2015Q3

REPORT INFORMATION
  Report Type: Spontaneous
  Country: US (occurrence: US)
  Receive Date: 20150918
  Receipt Date: 20150918
  Transmission Date: 20151125
  Serious: No
  Sender: FDA-Public Use
  Company Number: US-LUNDBECK-DKLU2003279

PATIENT
  Age: 48 Year
  Sex: Female

DRUGS (1)
  1. NORTHERA [Suspect]
     Active Substance: DROXIDOPA
     Indication: AUTONOMIC NEUROPATHY
     Route: 048
     Dates: start: 20150801

REACTIONS (6)
  - Pruritus [Unknown]
  - Feeling hot [Unknown]
  - Tremor [Unknown]
  - Hyperhidrosis [Unknown]
  - Wheezing [Unknown]
  - Dizziness [Unknown]

NARRATIVE: CASE EVENT DATE: 201508
